FAERS Safety Report 9544190 (Version 2)
Quarter: 2014Q1

REPORT INFORMATION
  Report Type: Spontaneous
  Country: US (occurrence: None)
  Receive Date: 20130524
  Receipt Date: 20130724
  Transmission Date: 20141002
  Serious: Yes (Other)
  Sender: FDA-Public Use
  Company Number: PHEH2013US002160

PATIENT
  Age: 47 Year
  Sex: Female
  Weight: 68 kg

DRUGS (7)
  1. GILENYA (FINGOLIMOD) CAPSULE) CAPSULE, 0.5MG [Suspect]
     Indication: MULTIPLE SCLEROSIS
     Route: 048
     Dates: start: 201109, end: 201206
  2. TOVIAZ (FESOTERODINE FUMARATE) [Concomitant]
  3. CADUET (AMLODIPINE BESILATE, ATORVASTATIN CALCIUM) [Concomitant]
  4. PREVACID (LANSOPRAZOLE) [Concomitant]
  5. TERBINAFINE [Concomitant]
  6. ALLEGRA (FEXOFENADINE HYDROCHLORIDE) [Concomitant]
  7. BACLOFEN [Concomitant]

REACTIONS (3)
  - Macular oedema [None]
  - Metamorphopsia [None]
  - Vision blurred [None]
